FAERS Safety Report 8420376-8 (Version None)
Quarter: 2012Q2

REPORT INFORMATION
  Report Type: 
  Country: None (occurrence: None)
  Receive Date: 20120607
  Receipt Date: 20120604
  Transmission Date: 20120825
  Serious: Yes (Hospitalization)
  Sender: FDA-Public Use
  Company Number: FR-MERCK-1204FRA00122

PATIENT
  Age: 62 Year
  Sex: Male
  Weight: 115 kg

DRUGS (5)
  1. JANUMET [Suspect]
     Indication: TYPE 2 DIABETES MELLITUS
     Route: 048
     Dates: start: 20101012
  2. METFORMIN PAMOATE [Concomitant]
     Route: 048
     Dates: start: 20120114, end: 20120326
  3. METFORMIN PAMOATE [Concomitant]
     Route: 065
     Dates: start: 20101012, end: 20111020
  4. METFORMIN PAMOATE [Concomitant]
     Indication: TYPE 2 DIABETES MELLITUS
     Route: 048
     Dates: start: 20100403, end: 20101011
  5. HYDROCHLOROTHIAZIDE AND TELMISARTAN [Concomitant]
     Indication: HYPERTENSION
     Route: 065
     Dates: start: 20070101

REACTIONS (1)
  - DIABETES MELLITUS INADEQUATE CONTROL [None]
